FAERS Safety Report 5739595-4 (Version None)
Quarter: 2008Q2

REPORT INFORMATION
  Report Type: 
  Country: None (occurrence: None)
  Receive Date: 20080515
  Receipt Date: 20080508
  Transmission Date: 20081010
  Serious: Yes (Other)
  Sender: FDA-Public Use
  Company Number: US-GENENTECH-258012

PATIENT
  Sex: Male

DRUGS (5)
  1. HERCEPTIN [Suspect]
     Indication: BREAST CANCER
     Dosage: 650 MG, SINGLE
     Route: 042
     Dates: start: 20070515
  2. HERCEPTIN [Suspect]
     Dosage: 480 MG, Q3W
     Route: 042
  3. TAXOTERE [Concomitant]
     Indication: BREAST CANCER
     Dates: start: 20070515, end: 20070828
  4. CARBOPLATIN [Concomitant]
     Indication: BREAST CANCER
     Dates: start: 20070515, end: 20070828
  5. ARIMIDEX [Concomitant]
     Indication: DRUG USE FOR UNKNOWN INDICATION
     Dates: start: 20071001

REACTIONS (2)
  - DISEASE PROGRESSION [None]
  - EJECTION FRACTION DECREASED [None]
